FAERS Safety Report 6358093-0 (Version None)
Quarter: 2009Q3

REPORT INFORMATION
  Report Type: 
  Country: None (occurrence: None)
  Receive Date: 20090916
  Receipt Date: 20090914
  Transmission Date: 20100115
  Serious: Yes (Disabling)
  Sender: FDA-Public Use
  Company Number: US-GENENTECH-285873

PATIENT
  Sex: Female
  Weight: 52.608 kg

DRUGS (2)
  1. AVASTIN [Suspect]
     Indication: OVARIAN CANCER
     Dosage: 15 MG/KG, Q21D
     Route: 042
     Dates: start: 20090521, end: 20090723
  2. TAXOTERE [Concomitant]
     Indication: OVARIAN CANCER
     Dosage: 75 MG/M2, UNK
     Route: 042
     Dates: start: 20090723

REACTIONS (3)
  - INFUSION SITE EXTRAVASATION [None]
  - INFUSION SITE SWELLING [None]
  - INJECTION SITE ERYTHEMA [None]
